FAERS Safety Report 8424277 (Version 4)
Quarter: 2012Q4

REPORT INFORMATION
  Report Type: 
  Country: US (occurrence: US)
  Receive Date: 20120224
  Receipt Date: 20120926
  Transmission Date: 20130627
  Serious: Yes (Life-Threatening, Hospitalization, Other)
  Sender: FDA-Public Use
  Company Number: US-PERRIGO-12US001328

PATIENT
  Age: 80 Year
  Sex: Male
  Weight: 113.38 kg

DRUGS (2)
  1. IBUPROFEN 200MG 647 [Suspect]
     Indication: HEADACHE
     Dosage: 200 mg, single
     Route: 048
     Dates: start: 20120209, end: 20120209
  2. HYDROCHLOROTHIAZIDE [Concomitant]
     Indication: HYPERTENSION
     Dosage: UNK
     Route: 065

REACTIONS (8)
  - Gastrointestinal haemorrhage [Unknown]
  - Haematochezia [Recovered/Resolved]
  - Haematemesis [Recovered/Resolved]
  - Constipation [Not Recovered/Not Resolved]
  - Erythema [Unknown]
  - Rash [Not Recovered/Not Resolved]
  - Blister [Unknown]
  - Dysarthria [Unknown]
